FAERS Safety Report 13006800 (Version 1)
Quarter: 2016Q4

REPORT INFORMATION
  Report Type: Spontaneous
  Country: GB (occurrence: GB)
  Receive Date: 20161207
  Receipt Date: 20161207
  Transmission Date: 20170207
  Serious: Yes (Other)
  Sender: FDA-Public Use
  Company Number: GB-009507513-1612GBR001592

PATIENT
  Age: 48 Year
  Sex: Male
  Weight: 68.8 kg

DRUGS (32)
  1. ROCURONIUM BROMIDE. [Suspect]
     Active Substance: ROCURONIUM BROMIDE
     Indication: ANAESTHESIA PROCEDURE
     Dosage: INDUCTION
     Route: 065
     Dates: start: 20160817, end: 20160817
  2. ONDANSETRON [Suspect]
     Active Substance: ONDANSETRON
     Indication: PRODUCT USED FOR UNKNOWN INDICATION
     Dosage: UNK
     Route: 065
     Dates: start: 20150528
  3. PROPOFOL. [Suspect]
     Active Substance: PROPOFOL
     Dosage: UNK
     Route: 065
     Dates: start: 20160702
  4. MIDAZOLAM [Suspect]
     Active Substance: MIDAZOLAM\MIDAZOLAM HYDROCHLORIDE
     Dosage: UNK
     Route: 065
     Dates: start: 20160702
  5. ACETAMINOPHEN. [Suspect]
     Active Substance: ACETAMINOPHEN
     Dosage: 1 G, AT 09:45H
     Route: 065
     Dates: start: 20160817, end: 20160817
  6. SEVOFLURANE. [Suspect]
     Active Substance: SEVOFLURANE
     Dosage: UNK
     Route: 065
     Dates: start: 20160702
  7. ONDANSETRON [Suspect]
     Active Substance: ONDANSETRON
     Dosage: UNK
     Route: 065
     Dates: start: 20160702
  8. PROPOFOL. [Suspect]
     Active Substance: PROPOFOL
     Dosage: PRE-INDUCTION
     Route: 065
     Dates: start: 20160817, end: 20160817
  9. DEXAMETHASONE. [Suspect]
     Active Substance: DEXAMETHASONE
     Dosage: UNK
     Dates: start: 20160702
  10. DEXAMETHASONE. [Suspect]
     Active Substance: DEXAMETHASONE
     Dosage: 6.6 MG, AT 09:15H
     Route: 065
     Dates: start: 20160817, end: 20160817
  11. MIDAZOLAM [Suspect]
     Active Substance: MIDAZOLAM\MIDAZOLAM HYDROCHLORIDE
     Indication: ANAESTHESIA PROCEDURE
     Dosage: UNK
     Route: 065
     Dates: start: 20150528
  12. SEVOFLURANE. [Suspect]
     Active Substance: SEVOFLURANE
     Dosage: UNK
     Route: 065
     Dates: start: 20150528
  13. SERETIDE [Concomitant]
     Active Substance: FLUTICASONE PROPIONATE\SALMETEROL XINAFOATE
     Indication: PRODUCT USED FOR UNKNOWN INDICATION
     Dosage: UNK
     Route: 065
  14. FENTANYL. [Suspect]
     Active Substance: FENTANYL
     Indication: ANAESTHESIA PROCEDURE
     Dosage: UNK
     Route: 065
     Dates: start: 20150528
  15. MORPHINE [Suspect]
     Active Substance: MORPHINE
     Dosage: 5 MG, AT 12:00H
     Route: 065
     Dates: start: 20160817, end: 20160817
  16. PROPOFOL. [Suspect]
     Active Substance: PROPOFOL
     Dosage: 280 MG, INDUCTION
     Route: 065
     Dates: start: 20160817, end: 20160817
  17. ACETAMINOPHEN. [Suspect]
     Active Substance: ACETAMINOPHEN
     Indication: PRODUCT USED FOR UNKNOWN INDICATION
     Dosage: UNK
     Route: 065
     Dates: start: 20150528, end: 20150528
  18. TIOTROPIUM BROMIDE [Concomitant]
     Active Substance: TIOTROPIUM BROMIDE
     Indication: PRODUCT USED FOR UNKNOWN INDICATION
     Dosage: UNK
     Route: 065
  19. MORPHINE [Suspect]
     Active Substance: MORPHINE
     Indication: PRODUCT USED FOR UNKNOWN INDICATION
     Dosage: UNK
     Route: 065
     Dates: start: 20150528
  20. ONDANSETRON [Suspect]
     Active Substance: ONDANSETRON
     Dosage: 4 MG, AT 12:00H
     Route: 065
     Dates: start: 20160817, end: 20160817
  21. DEXAMETHASONE. [Suspect]
     Active Substance: DEXAMETHASONE
     Indication: PRODUCT USED FOR UNKNOWN INDICATION
     Dosage: UNK
     Dates: start: 20150528
  22. SEVOFLURANE. [Suspect]
     Active Substance: SEVOFLURANE
     Indication: ANAESTHESIA PROCEDURE
     Dosage: MAINTENANCE
     Route: 065
     Dates: start: 20160817, end: 20160817
  23. FENTANYL. [Suspect]
     Active Substance: FENTANYL
     Dosage: 100 MG, PRE-INDUCTION
     Route: 065
     Dates: start: 20160817, end: 20160817
  24. ATRACURIUM BESYLATE. [Suspect]
     Active Substance: ATRACURIUM BESYLATE
     Indication: ANAESTHESIA PROCEDURE
     Dosage: UNK
     Route: 065
     Dates: start: 20150528
  25. EPHEDRINE. [Suspect]
     Active Substance: EPHEDRINE
     Indication: PRODUCT USED FOR UNKNOWN INDICATION
     Dosage: 6 MG, AT 12:00H
     Route: 065
     Dates: start: 20160817, end: 20160817
  26. PROPOFOL. [Suspect]
     Active Substance: PROPOFOL
     Indication: ANAESTHESIA PROCEDURE
     Dosage: UNK
     Route: 065
     Dates: start: 20150528
  27. ACETAMINOPHEN. [Suspect]
     Active Substance: ACETAMINOPHEN
     Dosage: UNK
     Route: 065
     Dates: start: 20160702
  28. DICLOFENAC [Suspect]
     Active Substance: DICLOFENAC
     Indication: PRODUCT USED FOR UNKNOWN INDICATION
     Dosage: AT 10:00H, 25 MG
     Route: 065
     Dates: start: 20160817, end: 20160817
  29. REMIFENTANIL HYDROCHLORIDE [Suspect]
     Active Substance: REMIFENTANIL HYDROCHLORIDE
     Indication: PRODUCT USED FOR UNKNOWN INDICATION
     Dosage: STRENGTH: 2MG/40ML, MULTIPLE DOSES THROUGHOUT SURGERY
     Route: 065
     Dates: start: 20160817, end: 20160817
  30. SUPRANE [Suspect]
     Active Substance: DESFLURANE
     Indication: ANAESTHESIA PROCEDURE
     Dosage: MAINTENANCE
     Route: 055
     Dates: start: 20160817, end: 20160817
  31. FENTANYL. [Suspect]
     Active Substance: FENTANYL
     Dosage: UNK
     Route: 065
     Dates: start: 20160702
  32. ALBUTEROL. [Concomitant]
     Active Substance: ALBUTEROL
     Indication: PRODUCT USED FOR UNKNOWN INDICATION
     Dosage: UNK
     Route: 065

REACTIONS (1)
  - Hyperkalaemia [Recovered/Resolved]

NARRATIVE: CASE EVENT DATE: 20160817
